FAERS Safety Report 25236907 (Version 2)
Quarter: 2025Q2

REPORT INFORMATION
  Report Type: Report from Study
  Country: US (occurrence: US)
  Receive Date: 20250424
  Receipt Date: 20250501
  Transmission Date: 20250716
  Serious: Yes (Hospitalization, Other)
  Sender: ABBVIE
  Company Number: US-ABBVIE-6240780

PATIENT
  Age: 45 Year
  Sex: Male

DRUGS (2)
  1. CREON [Suspect]
     Active Substance: PANCRELIPASE AMYLASE\PANCRELIPASE LIPASE\PANCRELIPASE PROTEASE
     Indication: Product used for unknown indication
     Route: 048
     Dates: start: 202410
  2. CREON [Suspect]
     Active Substance: PANCRELIPASE AMYLASE\PANCRELIPASE LIPASE\PANCRELIPASE PROTEASE
     Indication: Product used for unknown indication
     Route: 048
     Dates: start: 20250414

REACTIONS (9)
  - Cholecystectomy [Unknown]
  - Diabetes mellitus [Unknown]
  - Hospitalisation [Recovered/Resolved]
  - Intentional product misuse [Recovering/Resolving]
  - Asthenia [Unknown]
  - Muscle spasms [Unknown]
  - Abdominal pain [Unknown]
  - Vomiting [Unknown]
  - Pancreatitis [Unknown]

NARRATIVE: CASE EVENT DATE: 20250101
